FAERS Safety Report 6483757-8 (Version None)
Quarter: 2009Q4

REPORT INFORMATION
  Report Type: 
  Country: None (occurrence: None)
  Receive Date: 20091209
  Receipt Date: 20090507
  Transmission Date: 20100525
  Serious: No
  Sender: FDA-Public Use
  Company Number: US-AMGEN-KDL345874

PATIENT
  Sex: Female
  Weight: 70.4 kg

DRUGS (1)
  1. ENBREL [Suspect]
     Indication: ANKYLOSING SPONDYLITIS
     Route: 058
     Dates: start: 20090216

REACTIONS (3)
  - CONTUSION [None]
  - FALL [None]
  - UPPER LIMB FRACTURE [None]
